FAERS Safety Report 4696498-4 (Version None)
Quarter: 2005Q2

REPORT INFORMATION
  Report Type: 
  Country: None (occurrence: None)
  Receive Date: 20050621
  Receipt Date: 20050311
  Transmission Date: 20051028
  Serious: Yes (Hospitalization)
  Sender: FDA-Public Use
  Company Number: US-MERCK-0503USA02642

PATIENT
  Age: 34 Year
  Sex: Male
  Weight: 82 kg

DRUGS (23)
  1. VIOXX [Suspect]
     Indication: ARTHRALGIA
     Route: 048
     Dates: start: 19990101, end: 20010901
  2. NEURONTIN [Concomitant]
     Indication: PAIN
     Route: 065
     Dates: start: 19970101, end: 20010101
  3. NEURONTIN [Concomitant]
     Indication: ARTHRITIS
     Route: 065
     Dates: start: 19970101, end: 20010101
  4. VALIUM [Concomitant]
     Indication: DEPRESSION
     Route: 065
     Dates: start: 19980101, end: 20010101
  5. VALIUM [Concomitant]
     Indication: ANXIETY
     Route: 065
     Dates: start: 19980101, end: 20010101
  6. PERCOCET [Concomitant]
     Indication: PAIN
     Route: 065
     Dates: start: 19960101, end: 20040101
  7. TYLOX [Concomitant]
     Indication: PAIN
     Route: 065
     Dates: start: 20010101
  8. XANAX [Concomitant]
     Indication: DEPRESSION
     Route: 065
     Dates: start: 19960101
  9. XANAX [Concomitant]
     Indication: ANXIETY
     Route: 065
     Dates: start: 19960101
  10. TYLENOL [Concomitant]
     Indication: PAIN
     Route: 065
     Dates: start: 19960101, end: 20040101
  11. RANITIDINE [Concomitant]
     Indication: GASTRIC DISORDER
     Route: 065
  12. DARVOCET-N 100 [Concomitant]
     Indication: PAIN
     Route: 065
  13. RELAFEN [Concomitant]
     Indication: PAIN
     Route: 065
  14. ULTRAM [Concomitant]
     Indication: PAIN
     Route: 065
  15. SOMA [Concomitant]
     Indication: PAIN
     Route: 065
  16. OXYCONTIN [Concomitant]
     Indication: PAIN
     Route: 065
  17. FLEXERIL [Concomitant]
     Indication: PAIN
     Route: 065
     Dates: start: 20010301
  18. ATIVAN [Concomitant]
     Indication: ANXIETY
     Route: 065
  19. ATIVAN [Concomitant]
     Indication: DEPRESSION
     Route: 065
  20. BENZONATATE [Concomitant]
     Indication: COUGH
     Route: 065
  21. VICODIN [Concomitant]
     Indication: PAIN
     Route: 065
     Dates: start: 19960101
  22. CELEBREX [Concomitant]
     Indication: PAIN
     Route: 065
     Dates: start: 19980101, end: 20010101
  23. CELEBREX [Concomitant]
     Indication: ARTHRITIS
     Route: 065
     Dates: start: 19980101, end: 20010101

REACTIONS (9)
  - ANXIETY [None]
  - ARRHYTHMIA [None]
  - CHEST PAIN [None]
  - DEPRESSION [None]
  - GALLBLADDER DISORDER [None]
  - GASTROOESOPHAGEAL REFLUX DISEASE [None]
  - HAND DEFORMITY [None]
  - HEART RATE IRREGULAR [None]
  - MYOCARDIAL INFARCTION [None]
